FAERS Safety Report 13673453 (Version 1)
Quarter: 2017Q2

REPORT INFORMATION
  Report Type: Other
  Country: US (occurrence: US)
  Receive Date: 20170621
  Receipt Date: 20170621
  Transmission Date: 20170830
  Serious: Yes (Hospitalization)
  Sender: FDA-Public Use
  Company Number: US-DEXPHARM-20170880

PATIENT
  Age: 70 Year
  Sex: Female

DRUGS (4)
  1. CLOZAPINE. [Interacting]
     Active Substance: CLOZAPINE
  2. LEVETIRACETAM. [Suspect]
     Active Substance: LEVETIRACETAM
  3. GABAPENTIN. [Interacting]
     Active Substance: GABAPENTIN
  4. SERTRALINE [Interacting]
     Active Substance: SERTRALINE HYDROCHLORIDE

REACTIONS (2)
  - Chronic obstructive pulmonary disease [Unknown]
  - Drug interaction [Unknown]
